FAERS Safety Report 16195748 (Version 1)
Quarter: 2019Q2

REPORT INFORMATION
  Report Type: Spontaneous
  Country: CN (occurrence: CN)
  Receive Date: 20190415
  Receipt Date: 20190415
  Transmission Date: 20190711
  Serious: Yes (Other)
  Sender: FDA-Public Use
  Company Number: CN-ROCHE-2287868

PATIENT
  Sex: Male

DRUGS (6)
  1. CAPECITABINE. [Suspect]
     Active Substance: CAPECITABINE
     Indication: ADENOCARCINOMA GASTRIC
     Dosage: 2 TIMES A DAY, DAY1-DAY14, EVERY 28 DAYS
     Route: 048
     Dates: start: 20151123, end: 20160120
  2. APATINIB [Suspect]
     Active Substance: APATINIB
     Indication: ADENOCARCINOMA GASTRIC
     Route: 048
     Dates: start: 20160426, end: 20160930
  3. OXALIPLATIN. [Concomitant]
     Active Substance: OXALIPLATIN
     Indication: ADENOCARCINOMA GASTRIC
     Dosage: DAY 1
     Route: 041
     Dates: start: 20150527, end: 20151017
  4. CAPECITABINE. [Suspect]
     Active Substance: CAPECITABINE
     Indication: ADENOCARCINOMA GASTRIC
     Dosage: 2 TIMES A DAY, DAY1-DAY14, EVERY 3 WEEKS
     Route: 048
     Dates: start: 20150527, end: 20151017
  5. PACLITAXEL. [Concomitant]
     Active Substance: PACLITAXEL
     Indication: ADENOCARCINOMA GASTRIC
     Dosage: DAY1
     Route: 041
     Dates: start: 20160307, end: 20160330
  6. CISPLATIN. [Concomitant]
     Active Substance: CISPLATIN
     Indication: ADENOCARCINOMA GASTRIC
     Dosage: DAY1
     Route: 041
     Dates: start: 20160307, end: 20160330

REACTIONS (6)
  - Decreased appetite [Unknown]
  - Asthenia [Unknown]
  - Jaundice [Unknown]
  - Weight decreased [Unknown]
  - Lacunar infarction [Unknown]
  - Hypophagia [Unknown]
